FAERS Safety Report 10186573 (Version 2)
Quarter: 2014Q2

REPORT INFORMATION
  Report Type: Spontaneous
  Country: US (occurrence: US)
  Receive Date: 20140521
  Receipt Date: 20140617
  Transmission Date: 20141212
  Serious: Yes (Death, Hospitalization)
  Sender: FDA-Public Use
  Company Number: US-ACTELION-A-NJ2014-98871

PATIENT
  Age: 69 Year
  Sex: Female

DRUGS (1)
  1. OPSUMIT [Suspect]
     Indication: PULMONARY ARTERIAL HYPERTENSION
     Dosage: 10 MG, UNK
     Route: 048
     Dates: start: 20140322, end: 20140329

REACTIONS (6)
  - Cardiac failure [Fatal]
  - Pulmonary oedema [Unknown]
  - Respiratory failure [Unknown]
  - Renal impairment [Unknown]
  - Anaemia [Unknown]
  - Fluid overload [Unknown]
